FAERS Safety Report 24621017 (Version 1)
Quarter: 2024Q4

REPORT INFORMATION
  Report Type: Report from Study
  Country: IN (occurrence: IN)
  Receive Date: 20241114
  Receipt Date: 20241114
  Transmission Date: 20250115
  Serious: Yes (Other)
  Sender: INCYTE
  Company Number: IN-002147023-NVSC2024IN113771

PATIENT

DRUGS (1)
  1. RUXOLITINIB [Suspect]
     Active Substance: RUXOLITINIB
     Indication: Primary myelofibrosis
     Dosage: 5 MG, QD
     Route: 048
     Dates: start: 20230323

REACTIONS (18)
  - Pneumonia [Unknown]
  - Acute respiratory distress syndrome [Unknown]
  - Acute kidney injury [Unknown]
  - Acute pulmonary oedema [Unknown]
  - Balanoposthitis [Unknown]
  - Otitis externa [Unknown]
  - Fatigue [Unknown]
  - Anaemia [Recovering/Resolving]
  - Cardiac failure [Recovering/Resolving]
  - Influenza [Unknown]
  - Interstitial lung disease [Unknown]
  - Inappropriate schedule of product administration [Unknown]
  - Hyperglycaemia [Unknown]
  - Prostatomegaly [Unknown]
  - Pulmonary hypertension [Unknown]
  - Axonal neuropathy [Unknown]
  - Drug intolerance [Unknown]
  - Respiratory failure [Unknown]
